FAERS Safety Report 18505945 (Version 1)
Quarter: 2020Q4

REPORT INFORMATION
  Report Type: Spontaneous
  Country: NL (occurrence: PL)
  Receive Date: 20201116
  Receipt Date: 20201116
  Transmission Date: 20210114
  Serious: Yes (Other)
  Sender: FDA-Public Use
  Company Number: PL-FRESENIUS KABI-FK202012068

PATIENT
  Age: 33 Year
  Sex: Male
  Weight: 80 kg

DRUGS (2)
  1. EPINEPHRINE. [Concomitant]
     Active Substance: EPINEPHRINE
     Indication: LOCAL ANAESTHESIA
     Route: 065
     Dates: start: 20171106, end: 20171106
  2. LIDOCAINE 1% (MANUFACTURER UNKNOWN) [Suspect]
     Active Substance: LIDOCAINE HYDROCHLORIDE
     Indication: LOCAL ANAESTHESIA
     Route: 058
     Dates: start: 20171106, end: 20171106

REACTIONS (3)
  - Syncope [Recovered/Resolved]
  - Hyperhidrosis [Recovered/Resolved]
  - Bradycardia [Recovered/Resolved]

NARRATIVE: CASE EVENT DATE: 20171106
